FAERS Safety Report 21929982 (Version 2)
Quarter: 2023Q1

REPORT INFORMATION
  Report Type: Report from Study
  Country: AR (occurrence: AR)
  Receive Date: 20230131
  Receipt Date: 20230207
  Transmission Date: 20230418
  Serious: Yes (Death)
  Sender: FDA-Public Use
  Company Number: AR-002147023-NVSC2023AR020431

PATIENT
  Age: 21 Year
  Sex: Female

DRUGS (1)
  1. RYDAPT [Suspect]
     Active Substance: MIDOSTAURIN
     Indication: Acute myeloid leukaemia
     Dosage: 50 MG, Q12H
     Route: 048
     Dates: start: 20221230

REACTIONS (1)
  - Death [Fatal]

NARRATIVE: CASE EVENT DATE: 20230118
